FAERS Safety Report 24366569 (Version 1)
Quarter: 2024Q3

REPORT INFORMATION
  Report Type: Spontaneous
  Country: CN (occurrence: CN)
  Receive Date: 20240926
  Receipt Date: 20240926
  Transmission Date: 20241016
  Serious: Yes (Hospitalization, Other)
  Sender: RANBAXY
  Company Number: CN-SUN PHARMACEUTICAL INDUSTRIES LTD-2024R1-469680

PATIENT
  Age: 35 Year
  Sex: Female

DRUGS (4)
  1. PANTOPRAZOLE [Suspect]
     Active Substance: PANTOPRAZOLE
     Indication: Helicobacter infection
     Route: 065
  2. AMOXICILLIN [Suspect]
     Active Substance: AMOXICILLIN
     Indication: Helicobacter infection
     Route: 065
  3. BISMUTH [Suspect]
     Active Substance: BISMUTH
     Indication: Helicobacter infection
     Route: 065
  4. FURAZOLIDONE [Suspect]
     Active Substance: FURAZOLIDONE
     Indication: Helicobacter infection
     Route: 065

REACTIONS (2)
  - Interstitial lung disease [Recovered/Resolved]
  - Hypersensitivity [Recovered/Resolved]
